FAERS Safety Report 10673039 (Version 1)
Quarter: 2014Q4

REPORT INFORMATION
  Report Type: Report from Study
  Country: CA (occurrence: CA)
  Receive Date: 20141223
  Receipt Date: 20141223
  Transmission Date: 20150529
  Serious: Yes (Death, Other)
  Sender: FDA-Public Use
  Company Number: CA-BRISTOL-MYERS SQUIBB COMPANY-BMS-2014-001792

PATIENT
  Sex: Male

DRUGS (2)
  1. METHOTREXATE [Concomitant]
     Active Substance: METHOTREXATE
  2. ABATACEPT [Suspect]
     Active Substance: ABATACEPT
     Indication: RHEUMATOID ARTHRITIS
     Dosage: 125 MG, QWK
     Route: 058
     Dates: start: 201310, end: 2014

REACTIONS (1)
  - Cardiac arrest [Fatal]

NARRATIVE: CASE EVENT DATE: 2014
